FAERS Safety Report 4377088-X (Version None)
Quarter: 2004Q2

REPORT INFORMATION
  Report Type: 
  Country: None (occurrence: None)
  Receive Date: 20040608
  Receipt Date: 20040526
  Transmission Date: 20050107
  Serious: Yes (Hospitalization)
  Sender: FDA-Public Use
  Company Number: CA-JNJFOC-20031006407

PATIENT
  Age: 74 Year
  Sex: Female

DRUGS (6)
  1. REMICADE [Suspect]
     Indication: RHEUMATOID ARTHRITIS
     Dosage: INTRAVENOUS; 200 MG, INTRAVENOUS; 300 MG, INTRAVENOUS
     Route: 042
     Dates: start: 20000419
  2. REMICADE [Suspect]
     Indication: RHEUMATOID ARTHRITIS
     Dosage: INTRAVENOUS; 200 MG, INTRAVENOUS; 300 MG, INTRAVENOUS
     Route: 042
     Dates: start: 20020924
  3. REMICADE [Suspect]
     Indication: RHEUMATOID ARTHRITIS
     Dosage: INTRAVENOUS; 200 MG, INTRAVENOUS; 300 MG, INTRAVENOUS
     Route: 042
     Dates: start: 20030515
  4. METHOTREXATE [Concomitant]
  5. PREDNISONE TAB [Concomitant]
  6. CORTISONE [Suspect]

REACTIONS (33)
  - ACUTE PULMONARY OEDEMA [None]
  - ADENOCARCINOMA [None]
  - ANAEMIA [None]
  - ANKLE FRACTURE [None]
  - ARTHRODESIS [None]
  - ARTHROPATHY [None]
  - ATELECTASIS [None]
  - ATRIAL FIBRILLATION [None]
  - CARDIAC DISORDER [None]
  - CARDIAC FAILURE [None]
  - CARDIOMEGALY [None]
  - CELLULITIS [None]
  - CHRONIC OBSTRUCTIVE AIRWAYS DISEASE [None]
  - GASTROENTERITIS [None]
  - HELICOBACTER INFECTION [None]
  - HEPATIC CYST [None]
  - HIP FRACTURE [None]
  - HYPERTENSION [None]
  - JOINT INJURY [None]
  - LUNG NEOPLASM MALIGNANT [None]
  - METASTASIS [None]
  - MITRAL VALVE INCOMPETENCE [None]
  - OBLITERATIVE BRONCHIOLITIS [None]
  - OVARIAN CYST [None]
  - PLEURAL EFFUSION [None]
  - PULMONARY EMBOLISM [None]
  - PULMONARY FIBROSIS [None]
  - PULMONARY HYPERTENSION [None]
  - RENAL FAILURE ACUTE [None]
  - STRESS FRACTURE [None]
  - TIBIA FRACTURE [None]
  - VASCULAR CALCIFICATION [None]
  - WOUND [None]
